FAERS Safety Report 16970992 (Version 1)
Quarter: 2019Q4

REPORT INFORMATION
  Report Type: Spontaneous
  Country: US (occurrence: US)
  Receive Date: 20191028
  Receipt Date: 20191028
  Transmission Date: 20200122
  Serious: No
  Sender: FDA-Public Use
  Company Number: None

PATIENT
  Age: 55 Year
  Sex: Female
  Weight: 86.85 kg

DRUGS (6)
  1. BENADRYL [Concomitant]
     Active Substance: DIPHENHYDRAMINE HYDROCHLORIDE
  2. CHLORAPREP [Suspect]
     Active Substance: CHLORHEXIDINE GLUCONATE\ISOPROPYL ALCOHOL
     Indication: ANTIBIOTIC PROPHYLAXIS
     Route: 061
  3. GABAPENTIN. [Concomitant]
     Active Substance: GABAPENTIN
  4. METHOCARBAMOL. [Concomitant]
     Active Substance: METHOCARBAMOL
  5. ARMOUR THYROID [Concomitant]
     Active Substance: THYROID, PORCINE
  6. CORTISONE [Concomitant]
     Active Substance: CORTISONE

REACTIONS (4)
  - Skin burning sensation [None]
  - Oropharyngeal pain [None]
  - Rash [None]
  - Throat irritation [None]

NARRATIVE: CASE EVENT DATE: 20191022
